FAERS Safety Report 8251425-8 (Version None)
Quarter: 2012Q1

REPORT INFORMATION
  Report Type: 
  Country: None (occurrence: None)
  Receive Date: 20120328
  Receipt Date: 20120313
  Transmission Date: 20120608
  Serious: No
  Sender: FDA-Public Use
  Company Number: B0788740A

PATIENT
  Sex: Male
  Weight: 112.7642 kg

DRUGS (1)
  1. CEFUROXIME SODIUM [Suspect]
     Indication: PROPHYLAXIS
     Dosage: INTRAVENOUS
     Route: 042
     Dates: start: 20120207, end: 20120207

REACTIONS (3)
  - HYPERHIDROSIS [None]
  - PALLOR [None]
  - SYNCOPE [None]
